FAERS Safety Report 7177871-1 (Version None)
Quarter: 2010Q4

REPORT INFORMATION
  Report Type: 
  Country: None (occurrence: None)
  Receive Date: 20101220
  Receipt Date: 20101210
  Transmission Date: 20110411
  Serious: Yes (Other)
  Sender: FDA-Public Use
  Company Number: ES-ASTRAZENECA-2010SE58986

PATIENT
  Age: 52 Year
  Sex: Female

DRUGS (1)
  1. CRESTOR [Suspect]
     Route: 048
     Dates: start: 20100813, end: 20100908

REACTIONS (6)
  - ASTHENIA [None]
  - FACE OEDEMA [None]
  - GENITAL RASH [None]
  - HAEMATURIA [None]
  - MENORRHAGIA [None]
  - MYALGIA [None]
